FAERS Safety Report 8159725-7 (Version None)
Quarter: 2012Q1

REPORT INFORMATION
  Report Type: 
  Country: None (occurrence: None)
  Receive Date: 20120223
  Receipt Date: 20120213
  Transmission Date: 20120608
  Serious: Yes (Hospitalization)
  Sender: FDA-Public Use
  Company Number: JP-ROCHE-GNE306540

PATIENT
  Age: 59 Year
  Sex: Female
  Weight: 50.076 kg

DRUGS (6)
  1. PREDNISOLONE [Concomitant]
  2. OMALIZUMAB [Suspect]
     Indication: ASTHMA
     Route: 058
     Dates: start: 20090828, end: 20100521
  3. ADVAIR DISKUS 100/50 [Concomitant]
     Dates: start: 20090828
  4. SINGULAIR [Concomitant]
     Dates: start: 20090828
  5. OMALIZUMAB [Suspect]
     Route: 058
     Dates: start: 20100604
  6. UNIPHYL [Concomitant]
     Dates: start: 20090828

REACTIONS (1)
  - MYALGIA [None]
